FAERS Safety Report 7538903-1 (Version None)
Quarter: 2011Q2

REPORT INFORMATION
  Report Type: 
  Country: None (occurrence: None)
  Receive Date: 20110603
  Receipt Date: 20110517
  Transmission Date: 20111010
  Serious: Yes (Hospitalization)
  Sender: FDA-Public Use
  Company Number: 2010-3479

PATIENT
  Sex: Male

DRUGS (8)
  1. MOTILIUM [Suspect]
     Indication: PRODUCT USED FOR UNKNOWN INDICATION
     Dates: start: 20100407
  2. DUPHALAC [Concomitant]
  3. PREDNISOLONE [Concomitant]
  4. TRADOLAN RETARD DEPOTTABLES (TRAMADOL HYDROCHLORIDE) [Concomitant]
  5. APO-GO PEN (APO-GO) (APOMORPHINE HYDROCHLORIDE) (APOMORPHINE HYDROCHLO [Suspect]
     Indication: PRODUCT USED FOR UNKNOWN INDICATION
     Dosage: 10MG/ML AS NEEDED (10MG/ML AS NEEDED), PARENTERAL
     Route: 051
  6. APO-GO AMPOULES (APO-GO) (APOMORPHINE HYDROCHLORIDE) (APOMORPHINE HYDR [Suspect]
     Indication: PRODUCT USED FOR UNKNOWN INDICATION
     Dosage: 5MG/ML AT UNSPECIFIED FREQUENCY(NOT REPORTED), SUBCUTANEOUS
     Route: 058
     Dates: start: 20100503, end: 20100507
  7. MADOPARK QUICK (MADOPAR) [Concomitant]
  8. MADOPARK (MADOPAR) [Concomitant]

REACTIONS (3)
  - LUNG DISORDER [None]
  - LUNG INDURATION [None]
  - LUNG INFILTRATION [None]
